FAERS Safety Report 6067132-6 (Version None)
Quarter: 2009Q1

REPORT INFORMATION
  Report Type: 
  Country: None (occurrence: None)
  Receive Date: 20090205
  Receipt Date: 20081222
  Transmission Date: 20090719
  Serious: Yes (Other)
  Sender: FDA-Public Use
  Company Number: NL-ROCHE-604594

PATIENT
  Age: 18 Year
  Sex: Female

DRUGS (12)
  1. MYCOPHENOLATE MOFETIL [Suspect]
     Indication: NEPHROTIC SYNDROME
     Route: 065
  2. RITUXIMAB [Suspect]
     Indication: NEPHROTIC SYNDROME
     Route: 042
  3. RITUXIMAB [Suspect]
     Route: 042
  4. TACROLIMUS [Suspect]
     Indication: NEPHROTIC SYNDROME
     Dosage: TARGET TROUGH LEVEL: 5 TO 10 MG/L
     Route: 065
  5. TACROLIMUS [Suspect]
     Dosage: TARGET TROUGH LEVEL 8-12 MG/L
     Route: 065
  6. TACROLIMUS [Suspect]
     Dosage: TARGET TROUGH LEVEL 5 TO 10 MG/L
     Route: 065
  7. PREDNISONE [Suspect]
     Indication: NEPHROTIC SYNDROME
     Route: 065
  8. PREDNISONE [Suspect]
     Route: 065
  9. PREDNISONE [Suspect]
     Route: 065
  10. PREDNISONE [Suspect]
     Dosage: LOW DOSE
     Route: 065
  11. PREDNISONE [Suspect]
     Dosage: ROUTE: ORAL
     Route: 065
  12. METHYLPREDNISOLONE 4MG TAB [Suspect]
     Indication: NEPHROTIC SYNDROME
     Route: 042

REACTIONS (7)
  - BLOOD ALBUMIN DECREASED [None]
  - DYSPNOEA [None]
  - ERYSIPELAS [None]
  - HYPOTENSION [None]
  - PROTEINURIA [None]
  - PYREXIA [None]
  - SERUM SICKNESS [None]
